FAERS Safety Report 10793728 (Version 1)
Quarter: 2015Q1

REPORT INFORMATION
  Report Type: Spontaneous
  Country: US (occurrence: US)
  Receive Date: 20150213
  Receipt Date: 20150213
  Transmission Date: 20150721
  Serious: No
  Sender: FDA-Public Use
  Company Number: US-TEVA-540479USA

PATIENT
  Age: 75 Year
  Sex: Female
  Weight: 59.02 kg

DRUGS (4)
  1. ESTRADIOL. [Concomitant]
     Active Substance: ESTRADIOL
     Indication: HORMONE REPLACEMENT THERAPY
  2. VITAMINS [Concomitant]
     Active Substance: VITAMINS
     Indication: VITAMIN SUPPLEMENTATION
  3. PROVIGIL [Suspect]
     Active Substance: MODAFINIL
     Indication: CIRCADIAN RHYTHM SLEEP DISORDER
     Dates: start: 20150130
  4. LEVOTHROID [Concomitant]
     Active Substance: LEVOTHYROXINE SODIUM
     Indication: HYPOTHYROIDISM

REACTIONS (6)
  - Rash papular [Not Recovered/Not Resolved]
  - Feeling abnormal [Unknown]
  - Vein disorder [Not Recovered/Not Resolved]
  - Nasal oedema [Not Recovered/Not Resolved]
  - Incorrect dose administered [Unknown]
  - Rash [Not Recovered/Not Resolved]

NARRATIVE: CASE EVENT DATE: 20150208
